FAERS Safety Report 11685172 (Version 1)
Quarter: 2015Q4

REPORT INFORMATION
  Report Type: Report from Study
  Country: US (occurrence: US)
  Receive Date: 20151030
  Receipt Date: 20151030
  Transmission Date: 20160304
  Serious: No
  Sender: FDA-Public Use
  Company Number: US-AMGEN-USASL2015112929

PATIENT
  Age: 36 Year
  Sex: Female

DRUGS (1)
  1. ENBREL [Suspect]
     Active Substance: ETANERCEPT
     Indication: ACUTE FEBRILE NEUTROPHILIC DERMATOSIS
     Dosage: 50 MG, 2 TIMES/WK
     Route: 065
     Dates: start: 20140101

REACTIONS (2)
  - Off label use [Unknown]
  - Laceration [Unknown]

NARRATIVE: CASE EVENT DATE: 20140101
